FAERS Safety Report 6308300-5 (Version None)
Quarter: 2009Q3

REPORT INFORMATION
  Report Type: 
  Country: None (occurrence: None)
  Receive Date: 20090813
  Receipt Date: 20090804
  Transmission Date: 20100115
  Serious: Yes (Hospitalization, Other)
  Sender: FDA-Public Use
  Company Number: US-MERCK-0907USA01970

PATIENT
  Age: 60 Year
  Sex: Female

DRUGS (3)
  1. FOSAMAX [Suspect]
     Indication: OSTEOPOROSIS
     Route: 048
  2. FOSAMAX [Suspect]
     Route: 048
  3. FOSAMAX PLUS D [Suspect]
     Route: 048

REACTIONS (2)
  - NEOPLASM MALIGNANT [None]
  - OSTEONECROSIS [None]
